FAERS Safety Report 15525231 (Version 1)
Quarter: 2018Q4

REPORT INFORMATION
  Report Type: Spontaneous
  Country: FR (occurrence: FR)
  Receive Date: 20181018
  Receipt Date: 20181018
  Transmission Date: 20190205
  Serious: Yes (Other)
  Sender: FDA-Public Use
  Company Number: PHHY2018FR127499

PATIENT
  Age: 72 Year
  Sex: Male

DRUGS (3)
  1. DEXAMETHASONE. [Suspect]
     Active Substance: DEXAMETHASONE
     Dosage: SECOND DOSE
     Route: 065
  2. DEXAMETHASONE. [Suspect]
     Active Substance: DEXAMETHASONE
     Indication: DIABETIC RETINAL OEDEMA
     Dosage: SLOW-RELEASE DEXAMETHASONE IMPLANT (DEX-I) INTRAVITREAL INJECTIONS (IVI) IN THE LEFT EYE
     Route: 047
  3. DEXAMETHASONE. [Suspect]
     Active Substance: DEXAMETHASONE
     Dosage: THIRD DOSE
     Route: 065

REACTIONS (5)
  - Intraocular pressure increased [Recovering/Resolving]
  - Visual acuity reduced [Recovering/Resolving]
  - Disease recurrence [Recovering/Resolving]
  - Visual impairment [Recovering/Resolving]
  - Ocular hypertension [Recovering/Resolving]
